FAERS Safety Report 9370433 (Version 2)
Quarter: 2013Q2

REPORT INFORMATION
  Report Type: Spontaneous
  Country: US (occurrence: US)
  Receive Date: 20130626
  Receipt Date: 20130627
  Transmission Date: 20140414
  Serious: Yes (Other)
  Sender: FDA-Public Use
  Company Number: US-GLAXOSMITHKLINE-A1027905A

PATIENT
  Sex: Female

DRUGS (1)
  1. TYKERB [Suspect]
     Indication: METASTASES TO BREAST
     Dosage: 1500MG PER DAY

REACTIONS (2)
  - Brain neoplasm [Unknown]
  - Nasopharyngitis [Not Recovered/Not Resolved]
